FAERS Safety Report 20354460 (Version 2)
Quarter: 2022Q1

REPORT INFORMATION
  Report Type: Spontaneous
  Country: US (occurrence: US)
  Receive Date: 20220120
  Receipt Date: 20220121
  Transmission Date: 20220424
  Serious: Yes (Hospitalization)
  Sender: FDA-Public Use
  Company Number: US-JNJFOC-20220123806

PATIENT
  Age: 82 Year
  Sex: Male

DRUGS (1)
  1. XARELTO [Suspect]
     Active Substance: RIVAROXABAN
     Indication: Product used for unknown indication
     Dosage: SERIAL NUMBER-100008120508
     Route: 048

REACTIONS (3)
  - Renal failure [Unknown]
  - Dehydration [Unknown]
  - Product label issue [Unknown]

NARRATIVE: CASE EVENT DATE: 20211101
